FAERS Safety Report 17680740 (Version 1)
Quarter: 2020Q2

REPORT INFORMATION
  Report Type: Spontaneous
  Country: CA (occurrence: CA)
  Receive Date: 20200417
  Receipt Date: 20200417
  Transmission Date: 20200714
  Serious: Yes (Hospitalization)
  Sender: FDA-Public Use
  Company Number: CA-ANIPHARMA-2020-CA-000419

PATIENT
  Age: 78 Year
  Sex: Female
  Weight: 93 kg

DRUGS (36)
  1. SENNOSIDE A+B [Suspect]
     Active Substance: SENNOSIDES A AND B
     Dosage: UNK
     Route: 065
  2. TRAZODONE [Suspect]
     Active Substance: TRAZODONE HYDROCHLORIDE
     Dosage: 12.5 MG UNK / 10 MG UNK
     Route: 065
  3. ROSUVASTATIN CALCIUM. [Suspect]
     Active Substance: ROSUVASTATIN CALCIUM
     Dosage: UNK
     Route: 048
  4. FLUVACCIN [Suspect]
     Active Substance: INFLUENZA VIRUS VACCINE
     Dosage: UNK
     Route: 065
  5. LEVOTHYROXINE SODIUM. [Suspect]
     Active Substance: LEVOTHYROXINE SODIUM
     Dosage: UNK
     Route: 065
  6. MONTELUKAST [Suspect]
     Active Substance: MONTELUKAST SODIUM
     Dosage: 10 MG QD
     Route: 065
  7. STATEX (MORPHINE SULFATE) [Suspect]
     Active Substance: MORPHINE SULFATE
     Dosage: 10 MG UNK
     Route: 048
  8. SENOKOT [Suspect]
     Active Substance: SENNOSIDES
     Dosage: UNK
     Route: 065
  9. CANDESARTAN CILEXETIL. [Suspect]
     Active Substance: CANDESARTAN CILEXETIL
     Indication: PRODUCT USED FOR UNKNOWN INDICATION
     Dosage: 8 MG QD
     Route: 048
  10. MEPOLIZUMAB [Suspect]
     Active Substance: MEPOLIZUMAB
     Dosage: 100 MG UNK / 100 MG UNK
     Route: 042
  11. MORPHINE [Suspect]
     Active Substance: MORPHINE
     Dosage: 10 MG UNK
     Route: 065
  12. PRAMIPEXOLE. [Suspect]
     Active Substance: PRAMIPEXOLE
     Dosage: .25 MG UNK / .5 MG UNK
     Route: 048
  13. VENTOLIN [Suspect]
     Active Substance: ALBUTEROL SULFATE
     Dosage: UNK
     Route: 065
  14. SPIRIVA [Suspect]
     Active Substance: TIOTROPIUM BROMIDE MONOHYDRATE
     Dosage: 1 DF QD
     Route: 065
  15. EFINACONAZOLE [Suspect]
     Active Substance: EFINACONAZOLE
     Dosage: UNK
     Route: 065
  16. NASONEX [Suspect]
     Active Substance: MOMETASONE FUROATE
     Dosage: UNK
     Route: 065
  17. ACETAMINOPHEN. [Suspect]
     Active Substance: ACETAMINOPHEN
     Dosage: 1000 MG UNK
     Route: 065
  18. PREGABALIN. [Suspect]
     Active Substance: PREGABALIN
     Dosage: 75 MG UNK
     Route: 048
  19. VITAMIN D NOS [Suspect]
     Active Substance: VITAMIN D NOS
     Dosage: UNK
     Route: 048
  20. ZOPICLONE [Suspect]
     Active Substance: ZOPICLONE
     Dosage: UNK
     Route: 065
  21. NITROGLYCERIN. [Suspect]
     Active Substance: NITROGLYCERIN
     Dosage: UNK
     Route: 065
  22. ATROVENT [Suspect]
     Active Substance: IPRATROPIUM BROMIDE
     Dosage: UNK
     Route: 065
  23. SINGULAIR [Suspect]
     Active Substance: MONTELUKAST SODIUM
     Dosage: UNK
     Route: 065
  24. PANTOLOC [Suspect]
     Active Substance: PANTOPRAZOLE SODIUM
     Dosage: UNK
     Route: 065
  25. PREVNAR [Suspect]
     Active Substance: PNEUMOCOCCAL 7-VALENT CONJUGATE VACCINE (DIPHTHERIA CRM197 PROTEIN)
     Dosage: UNK
     Route: 065
  26. RISEDRONATE SODIUM. [Suspect]
     Active Substance: RISEDRONATE SODIUM
     Dosage: UNK
     Route: 065
  27. QUETIAPINE. [Suspect]
     Active Substance: QUETIAPINE
     Dosage: UNK
     Route: 048
  28. DEXILANT [Suspect]
     Active Substance: DEXLANSOPRAZOLE
     Dosage: UNK
     Route: 065
  29. DOMPERIDONE [Suspect]
     Active Substance: DOMPERIDONE
     Dosage: UNK
     Route: 065
  30. LANSOPRAZOLE. [Suspect]
     Active Substance: LANSOPRAZOLE
     Dosage: UNK
     Route: 065
  31. SYNTHROID [Suspect]
     Active Substance: LEVOTHYROXINE SODIUM
     Dosage: UNK
     Route: 065
  32. BUDESONIDE. [Suspect]
     Active Substance: BUDESONIDE
     Dosage: UNK
     Route: 055
  33. XOLAIR [Suspect]
     Active Substance: OMALIZUMAB
     Dosage: UNK
     Route: 065
  34. RANITIDINE. [Suspect]
     Active Substance: RANITIDINE
     Dosage: UNK
     Route: 065
  35. SYMBICORT [Suspect]
     Active Substance: BUDESONIDE\FORMOTEROL FUMARATE DIHYDRATE
     Dosage: 2 DOSAGE FORM, TWO TIMES A DAY
     Route: 055
  36. AZITHROMYCIN ANHYDROUS. [Suspect]
     Active Substance: AZITHROMYCIN ANHYDROUS
     Dosage: UNK
     Route: 065

REACTIONS (38)
  - Pleural effusion [Unknown]
  - Rales [Unknown]
  - Oedema peripheral [Unknown]
  - Fatigue [Unknown]
  - Liver function test increased [Unknown]
  - Cough [Unknown]
  - Bronchopulmonary aspergillosis allergic [Unknown]
  - Haemoptysis [Unknown]
  - Hypoxia [Unknown]
  - Pulmonary fibrosis [Unknown]
  - Abdominal pain upper [Unknown]
  - Dyspnoea [Unknown]
  - Pyrexia [Unknown]
  - Blood creatinine increased [Unknown]
  - Drug ineffective [Unknown]
  - Gastrooesophageal reflux disease [Unknown]
  - Musculoskeletal stiffness [Unknown]
  - Sputum discoloured [Unknown]
  - Lower respiratory tract infection [Unknown]
  - Aspiration [Unknown]
  - Anaemia [Unknown]
  - Lung opacity [Unknown]
  - Obstructive airways disorder [Unknown]
  - Constipation [Unknown]
  - Asthenia [Unknown]
  - Pneumonia [Unknown]
  - Upper respiratory tract infection [Unknown]
  - Asthma [Unknown]
  - Headache [Unknown]
  - Drug hypersensitivity [Unknown]
  - Transaminases increased [Unknown]
  - Bronchiectasis [Unknown]
  - Wheezing [Unknown]
  - Pain [Unknown]
  - Tremor [Unknown]
  - Total lung capacity decreased [Unknown]
  - Blood calcium increased [Unknown]
  - Blood test abnormal [Unknown]
